FAERS Safety Report 22366505 (Version 1)
Quarter: 2023Q2

REPORT INFORMATION
  Report Type: Spontaneous
  Country: US (occurrence: None)
  Receive Date: 20230524
  Receipt Date: 20230524
  Transmission Date: 20230722
  Serious: Yes (Hospitalization)
  Sender: FDA-Public Use
  Company Number: None

PATIENT
  Age: 4 Year
  Sex: Female
  Weight: 18 kg

DRUGS (2)
  1. PREDNISOLONE SODIUM PHOSPHATE ORAL SOLUTION [Suspect]
     Active Substance: PREDNISOLONE SODIUM PHOSPHATE
     Indication: Urticaria
     Route: 048
     Dates: start: 20230517
  2. certizine [Concomitant]

REACTIONS (4)
  - Recalled product administered [None]
  - Product quality issue [None]
  - Pyrexia [None]
  - Vomiting [None]

NARRATIVE: CASE EVENT DATE: 20230517
